FAERS Safety Report 8276273-4 (Version None)
Quarter: 2012Q2

REPORT INFORMATION
  Report Type: 
  Country: None (occurrence: None)
  Receive Date: 20120412
  Receipt Date: 20120407
  Transmission Date: 20120825
  Serious: Yes (Other)
  Sender: FDA-Public Use
  Company Number: PHEH2012US005272

PATIENT
  Sex: Male
  Weight: 77.098 kg

DRUGS (3)
  1. KEPPRA [Concomitant]
     Indication: CONVULSION
  2. KEPPRA [Concomitant]
     Indication: EPILEPSY
     Dosage: 1500 MG, BID
     Route: 048
  3. GILENYA [Suspect]
     Indication: RELAPSING-REMITTING MULTIPLE SCLEROSIS
     Dosage: 0.5 MG, QD
     Route: 048
     Dates: start: 20120301, end: 20120315

REACTIONS (6)
  - COGNITIVE DISORDER [None]
  - LEUKOPENIA [None]
  - MEMORY IMPAIRMENT [None]
  - IMPAIRED SELF-CARE [None]
  - CONVULSION [None]
  - MALAISE [None]
